FAERS Safety Report 9236932 (Version 3)
Quarter: 2013Q2

REPORT INFORMATION
  Report Type: Spontaneous
  Country: DE (occurrence: None)
  Receive Date: 20130415
  Receipt Date: 20130617
  Transmission Date: 20140414
  Serious: Yes (Hospitalization)
  Sender: FDA-Public Use
  Company Number: UTC-031234

PATIENT
  Age: 77 Year
  Sex: Male
  Weight: 76 kg

DRUGS (11)
  1. REMODULIN (INJECTION FOR INFUSION) (TREPROSTINIL SODIUM) [Suspect]
     Indication: PULMONARY ARTERIAL HYPERTENSION
     Dosage: 51.264 UG/KG (0.0356 UG/KG,1 IN 1 MIN)
     Route: 058
     Dates: start: 20130320
  2. REVATIO (SILDENAFIL CITRATE) (UNKNOWN) (SILDENAFIL) [Concomitant]
  3. METFORMIN (UNKNOWN) [Concomitant]
  4. SIMVASTATIN (UNKNOWN) [Concomitant]
  5. ASA (ACETYLSALICYLIC ACID) (UNKNOWN) [Concomitant]
  6. PROCARDIA (NIFEDIPINE) (UNKNOWN) (NIFEDIPINE) [Concomitant]
  7. PANTOZOL (PANTOPRAZOLE SODIUM) (UNKNOWN) [Concomitant]
  8. HYDROMORPHONE [Concomitant]
  9. NOVAMINSULFON (METAMIZOLE SODIUM) [Concomitant]
  10. JURNISTA ( HYDROMORPHONE HYDROCHLORIDE) [Concomitant]
  11. TRACLEER (BOSENTAN) [Concomitant]

REACTIONS (2)
  - Abdominal pain [None]
  - Diarrhoea [None]
